FAERS Safety Report 14667843 (Version 1)
Quarter: 2018Q1

REPORT INFORMATION
  Report Type: Spontaneous
  Country: US (occurrence: US)
  Receive Date: 20180320
  Receipt Date: 20180320
  Transmission Date: 20180509
  Serious: No
  Sender: FDA-Public Use
  Company Number: None

PATIENT
  Age: 58 Year
  Sex: Male

DRUGS (1)
  1. NINLARO [Suspect]
     Active Substance: IXAZOMIB CITRATE
     Indication: PLASMA CELL MYELOMA
     Dosage: 4 MG DAY 1, 8, 15 OF A 28 DAY CYCLE PO
     Route: 048
     Dates: start: 20170920

REACTIONS (1)
  - Eye disorder [None]

NARRATIVE: CASE EVENT DATE: 20180316
